FAERS Safety Report 11938409 (Version 1)
Quarter: 2016Q1

REPORT INFORMATION
  Report Type: Report from Study
  Country: JP (occurrence: JP)
  Receive Date: 20160122
  Receipt Date: 20160122
  Transmission Date: 20160526
  Serious: Yes (Life-Threatening, Hospitalization, Other)
  Sender: FDA-Public Use
  Company Number: JP-ASTELLAS-2007JP002227

PATIENT
  Age: 18 Year
  Sex: Female
  Weight: 50 kg

DRUGS (52)
  1. TACROLIMUS. [Suspect]
     Active Substance: TACROLIMUS
  2. LUPRAC [Concomitant]
     Active Substance: TORSEMIDE
     Indication: SYSTEMIC LUPUS ERYTHEMATOSUS
     Route: 048
     Dates: end: 20080204
  3. PYDOXAL [Concomitant]
     Active Substance: PYRIDOXAL
     Indication: PROPHYLAXIS
     Route: 048
     Dates: start: 20080212, end: 20080807
  4. VENOGLOBULIN-IH [Concomitant]
     Indication: VARICELLA
     Route: 065
     Dates: start: 20070516, end: 20070516
  5. ARASENA A [Concomitant]
     Active Substance: VIDARABINE
     Indication: VARICELLA
     Route: 065
     Dates: start: 20070517, end: 20070523
  6. TACROLIMUS. [Suspect]
     Active Substance: TACROLIMUS
     Route: 048
     Dates: start: 20090522
  7. PREDONINE [Suspect]
     Active Substance: PREDNISOLONE\PREDNISOLONE ACETATE\PREDNISOLONE SODIUM SUCCINATE
     Indication: LUPUS NEPHRITIS
     Route: 048
     Dates: start: 200209, end: 20070610
  8. PREDONINE [Suspect]
     Active Substance: PREDNISOLONE\PREDNISOLONE ACETATE\PREDNISOLONE SODIUM SUCCINATE
  9. WARFARIN [Suspect]
     Active Substance: WARFARIN
     Indication: SYSTEMIC LUPUS ERYTHEMATOSUS
     Route: 048
     Dates: end: 20080204
  10. WARFARIN [Suspect]
     Active Substance: WARFARIN
     Route: 048
     Dates: start: 20100219
  11. BEZATOL [Concomitant]
     Active Substance: BEZAFIBRATE
     Indication: PRODUCT USED FOR UNKNOWN INDICATION
     Route: 048
     Dates: end: 20080204
  12. PERSANTIN [Concomitant]
     Active Substance: DIPYRIDAMOLE
     Route: 048
  13. ISCOTIN [Concomitant]
     Active Substance: ISONIAZID
     Indication: PROPHYLAXIS
     Route: 048
     Dates: start: 20080212, end: 20080807
  14. PARIET [Concomitant]
     Active Substance: RABEPRAZOLE SODIUM
     Indication: SYSTEMIC LUPUS ERYTHEMATOSUS
     Route: 048
     Dates: end: 20070919
  15. CICLOSPORIN [Concomitant]
     Active Substance: CYCLOSPORINE
     Indication: LUPUS NEPHRITIS
     Dosage: UNK UNK, UNKNOWN FREQ.
     Route: 065
  16. KAYTWO [Concomitant]
     Active Substance: MENATETRENONE
     Indication: LOWER GASTROINTESTINAL HAEMORRHAGE
     Route: 042
     Dates: start: 20080204, end: 20080204
  17. WARFARIN [Suspect]
     Active Substance: WARFARIN
     Route: 048
     Dates: start: 20080212, end: 20100218
  18. FERROMIA [Concomitant]
     Active Substance: FERROUS CITRATE
     Indication: SYSTEMIC LUPUS ERYTHEMATOSUS
     Route: 048
     Dates: end: 20080204
  19. GASTER [Concomitant]
     Active Substance: FAMOTIDINE
     Indication: PROPHYLAXIS
     Route: 048
     Dates: start: 20071011, end: 20080204
  20. TACROLIMUS. [Suspect]
     Active Substance: TACROLIMUS
     Indication: SYSTEMIC LUPUS ERYTHEMATOSUS
     Route: 048
     Dates: start: 20070820, end: 20070918
  21. PREDONINE [Suspect]
     Active Substance: PREDNISOLONE\PREDNISOLONE ACETATE\PREDNISOLONE SODIUM SUCCINATE
     Route: 048
     Dates: start: 20090116
  22. AMLODIN [Concomitant]
     Active Substance: AMLODIPINE BESYLATE
     Indication: SYSTEMIC LUPUS ERYTHEMATOSUS
     Route: 048
  23. PERSANTIN [Concomitant]
     Active Substance: DIPYRIDAMOLE
     Indication: LUPUS NEPHRITIS
     Route: 048
     Dates: end: 20080204
  24. GASTER [Concomitant]
     Active Substance: FAMOTIDINE
     Indication: PROPHYLAXIS
     Route: 065
     Dates: start: 20080204, end: 20080210
  25. MIDAZOLAM [Concomitant]
     Active Substance: MIDAZOLAM\MIDAZOLAM HYDROCHLORIDE
     Indication: BACK PAIN
     Dosage: UNK UNK, CONTINUOUS
     Route: 065
     Dates: start: 200705
  26. TACROLIMUS. [Suspect]
     Active Substance: TACROLIMUS
     Route: 048
     Dates: start: 20080502, end: 20081009
  27. TACROLIMUS. [Suspect]
     Active Substance: TACROLIMUS
     Route: 048
     Dates: start: 20081010, end: 20090521
  28. AMLODIN [Concomitant]
     Active Substance: AMLODIPINE BESYLATE
     Route: 048
     Dates: start: 20080212
  29. PERSANTIN [Concomitant]
     Active Substance: DIPYRIDAMOLE
     Indication: SYSTEMIC LUPUS ERYTHEMATOSUS
     Route: 048
     Dates: start: 20080212
  30. ACINON [Concomitant]
     Active Substance: NIZATIDINE
     Indication: PROPHYLAXIS
     Route: 048
     Dates: start: 20070920, end: 20071010
  31. LACB-R [Concomitant]
     Indication: DIARRHOEA
     Route: 048
     Dates: start: 20080205, end: 20080212
  32. TACROLIMUS. [Suspect]
     Active Substance: TACROLIMUS
     Indication: LUPUS NEPHRITIS
     Route: 048
     Dates: start: 20070411, end: 20070513
  33. TACROLIMUS. [Suspect]
     Active Substance: TACROLIMUS
     Route: 048
     Dates: start: 20070919, end: 20080203
  34. PREDONINE [Suspect]
     Active Substance: PREDNISOLONE\PREDNISOLONE ACETATE\PREDNISOLONE SODIUM SUCCINATE
  35. PREDONINE [Suspect]
     Active Substance: PREDNISOLONE\PREDNISOLONE ACETATE\PREDNISOLONE SODIUM SUCCINATE
     Route: 048
     Dates: start: 20081212, end: 20090115
  36. LUPRAC [Concomitant]
     Active Substance: TORSEMIDE
     Route: 048
     Dates: start: 20080212
  37. ONEALFA [Concomitant]
     Active Substance: ALFACALCIDOL
     Indication: SYSTEMIC LUPUS ERYTHEMATOSUS
     Dosage: 0.5 ?G, ONCE DAILY
     Route: 048
     Dates: end: 20080204
  38. ONEALFA [Concomitant]
     Active Substance: ALFACALCIDOL
     Indication: PROPHYLAXIS
     Dosage: 0.5 ?G, ONCE DAILY
     Route: 048
     Dates: start: 20080212
  39. FERROMIA [Concomitant]
     Active Substance: FERROUS CITRATE
     Route: 048
     Dates: start: 20080212, end: 20090501
  40. FERROMIA [Concomitant]
     Active Substance: FERROUS CITRATE
     Route: 048
     Dates: start: 20090723
  41. ISCOTIN [Concomitant]
     Active Substance: ISONIAZID
     Indication: PULMONARY TUBERCULOSIS
     Route: 048
     Dates: start: 20070327, end: 20080204
  42. PREDONINE [Suspect]
     Active Substance: PREDNISOLONE\PREDNISOLONE ACETATE\PREDNISOLONE SODIUM SUCCINATE
  43. PREDONINE [Suspect]
     Active Substance: PREDNISOLONE\PREDNISOLONE ACETATE\PREDNISOLONE SODIUM SUCCINATE
     Route: 048
     Dates: start: 20070820, end: 20070918
  44. PREDONINE [Suspect]
     Active Substance: PREDNISOLONE\PREDNISOLONE ACETATE\PREDNISOLONE SODIUM SUCCINATE
  45. ACTIDAS [Suspect]
     Active Substance: ACYCLOVIR
     Indication: VARICELLA
     Route: 065
     Dates: start: 20070513, end: 20070516
  46. GASTER [Concomitant]
     Active Substance: FAMOTIDINE
     Route: 048
     Dates: start: 20080212
  47. PARIET [Concomitant]
     Active Substance: RABEPRAZOLE SODIUM
     Indication: PROPHYLAXIS
  48. CARDENALIN [Concomitant]
     Active Substance: DOXAZOSIN MESYLATE
     Indication: SYSTEMIC LUPUS ERYTHEMATOSUS
     Route: 048
     Dates: end: 20070919
  49. PREDONINE [Suspect]
     Active Substance: PREDNISOLONE\PREDNISOLONE ACETATE\PREDNISOLONE SODIUM SUCCINATE
     Indication: SYSTEMIC LUPUS ERYTHEMATOSUS
     Route: 048
     Dates: start: 20070611, end: 20070624
  50. PREDONINE [Suspect]
     Active Substance: PREDNISOLONE\PREDNISOLONE ACETATE\PREDNISOLONE SODIUM SUCCINATE
  51. AMLODIN [Concomitant]
     Active Substance: AMLODIPINE BESYLATE
     Route: 048
     Dates: end: 20080204
  52. PYDOXAL [Concomitant]
     Active Substance: PYRIDOXAL
     Indication: PULMONARY TUBERCULOSIS
     Route: 048
     Dates: start: 20070327, end: 20080204

REACTIONS (9)
  - Blood urea increased [Recovering/Resolving]
  - Diarrhoea [Recovered/Resolved]
  - Scab [None]
  - Platelet count decreased [Recovering/Resolving]
  - Blood creatinine increased [Recovering/Resolving]
  - Arthralgia [Recovered/Resolved]
  - Varicella [Recovered/Resolved]
  - Lower gastrointestinal haemorrhage [Recovered/Resolved]
  - Hepatic function abnormal [Recovering/Resolving]

NARRATIVE: CASE EVENT DATE: 200705
